FAERS Safety Report 14983015 (Version 8)
Quarter: 2020Q3

REPORT INFORMATION
  Report Type: Report from Study
  Country: CA (occurrence: CA)
  Receive Date: 20180607
  Receipt Date: 20200909
  Transmission Date: 20201102
  Serious: Yes (Hospitalization, Other)
  Sender: FDA-Public Use
  Company Number: CA-GLAXOSMITHKLINE-CA2018GSK099343

PATIENT
  Sex: Female

DRUGS (5)
  1. SALBUTAMOL SULPHATE [Suspect]
     Active Substance: ALBUTEROL SULFATE
     Indication: PRODUCT USED FOR UNKNOWN INDICATION
     Dosage: UNK (AS NEEDED)
     Route: 042
  2. NUCALA [Suspect]
     Active Substance: MEPOLIZUMAB
     Indication: ASTHMA
     Dosage: 100 MG, Z(MONTHLY)
     Route: 042
     Dates: start: 20180730
  3. ALVESCO [Suspect]
     Active Substance: CICLESONIDE
     Indication: PRODUCT USED FOR UNKNOWN INDICATION
     Dosage: 4 PUFF(S), BID
     Route: 055
  4. INSPIOLTO RESPIMAT [Suspect]
     Active Substance: OLODATEROL HYDROCHLORIDE\TIOTROPIUM BROMIDE MONOHYDRATE
     Indication: PRODUCT USED FOR UNKNOWN INDICATION
     Dosage: 2 PUFF(S), QD
     Route: 055
  5. PREDNISONE. [Concomitant]
     Active Substance: PREDNISONE
     Indication: ASTHMA
     Dosage: 5 MG, BID
     Route: 048
     Dates: end: 2018

REACTIONS (8)
  - Asthma [Recovering/Resolving]
  - Malaise [Unknown]
  - Respiratory depression [Unknown]
  - Wheezing [Recovered/Resolved]
  - Therapeutic product effect incomplete [Unknown]
  - Loss of personal independence in daily activities [Recovering/Resolving]
  - Blood count abnormal [Unknown]
  - Dyspnoea [Recovering/Resolving]
